FAERS Safety Report 22262238 (Version 1)
Quarter: 2023Q2

REPORT INFORMATION
  Report Type: Report from Study
  Country: US (occurrence: US)
  Receive Date: 20230428
  Receipt Date: 20230428
  Transmission Date: 20230722
  Serious: Yes (Other)
  Sender: FDA-Public Use
  Company Number: US-ABBVIE-4744882

PATIENT
  Sex: Male

DRUGS (1)
  1. VENCLEXTA [Suspect]
     Active Substance: VENETOCLAX
     Indication: Myeloid leukaemia
     Dosage: FORM STRENGTH: 100 MG?TAKE 1 TABLET BY MOUTHON DAY 1, 2 TABLETS ON DAY 2, THEN 4 TABLETS ONCE DAI...
     Route: 048
     Dates: start: 20230403

REACTIONS (1)
  - Cerebrovascular accident [Unknown]
